FAERS Safety Report 11858817 (Version 1)
Quarter: 2015Q4

REPORT INFORMATION
  Report Type: Spontaneous
  Country: FR (occurrence: FR)
  Receive Date: 20151222
  Receipt Date: 20151222
  Transmission Date: 20160305
  Serious: Yes (Other)
  Sender: FDA-Public Use
  Company Number: FR-ASTRAZENECA-2015SF28738

PATIENT
  Age: 18 Year
  Sex: Male

DRUGS (4)
  1. XEROQUEL [Suspect]
     Active Substance: QUETIAPINE FUMARATE
     Route: 048
     Dates: start: 2012
  2. HALDOL [Suspect]
     Active Substance: HALOPERIDOL
     Route: 051
     Dates: start: 2012
  3. RISPERIDONE. [Suspect]
     Active Substance: RISPERIDONE
     Route: 051
     Dates: start: 2012
  4. PALIPERIDONE PALMITATE [Suspect]
     Active Substance: PALIPERIDONE PALMITATE
     Route: 051
     Dates: start: 2012

REACTIONS (19)
  - Eating disorder [Unknown]
  - Dyskinesia [Unknown]
  - Diplopia [Unknown]
  - Mental retardation [Unknown]
  - Affective disorder [Unknown]
  - Libido disorder [Unknown]
  - Salivary hypersecretion [Unknown]
  - Arthropathy [Unknown]
  - Paraesthesia [Unknown]
  - Anal paraesthesia [Unknown]
  - Personality disorder [Unknown]
  - Decreased interest [Unknown]
  - Abnormal behaviour [Unknown]
  - Dyslexia [Unknown]
  - Visual impairment [Unknown]
  - Anxiety [Unknown]
  - Somnolence [Recovering/Resolving]
  - Headache [Unknown]
  - Depressed mood [Unknown]

NARRATIVE: CASE EVENT DATE: 2012
